FAERS Safety Report 22226460 (Version 7)
Quarter: 2024Q2

REPORT INFORMATION
  Report Type: Other
  Country: JP (occurrence: JP)
  Receive Date: 20230419
  Receipt Date: 20240502
  Transmission Date: 20240716
  Serious: Yes (Death, Other)
  Sender: FDA-Public Use
  Company Number: JP-CHUGAI-2023013582

PATIENT
  Age: 67 Year
  Sex: Male

DRUGS (7)
  1. TECENTRIQ [Suspect]
     Active Substance: ATEZOLIZUMAB
     Indication: Hepatocellular carcinoma
     Route: 065
     Dates: start: 20220307
  2. TECENTRIQ [Suspect]
     Active Substance: ATEZOLIZUMAB
     Route: 065
     Dates: start: 20221004, end: 20221004
  3. TECENTRIQ [Suspect]
     Active Substance: ATEZOLIZUMAB
     Route: 065
     Dates: start: 20221115, end: 20221115
  4. AVASTIN [Suspect]
     Active Substance: BEVACIZUMAB
     Indication: Hepatocellular carcinoma
     Dosage: UNK
     Route: 065
     Dates: start: 20220307, end: 2022
  5. AVASTIN [Suspect]
     Active Substance: BEVACIZUMAB
     Dosage: MOST RECENT DOSE: 15/NOV/2022
     Route: 065
     Dates: end: 20221115
  6. BEVACIZUMAB [Suspect]
     Active Substance: BEVACIZUMAB
     Indication: Hepatocellular carcinoma
     Route: 065
     Dates: start: 20220307
  7. BEVACIZUMAB [Suspect]
     Active Substance: BEVACIZUMAB
     Route: 065
     Dates: start: 20221115, end: 20221115

REACTIONS (5)
  - Hepatocellular carcinoma [Fatal]
  - Hypertension [Unknown]
  - Dermatitis bullous [Not Recovered/Not Resolved]
  - Hypothyroidism [Not Recovered/Not Resolved]
  - Proteinuria [Unknown]

NARRATIVE: CASE EVENT DATE: 20220329
